FAERS Safety Report 8517272-4 (Version None)
Quarter: 2012Q3

REPORT INFORMATION
  Report Type: 
  Country: None (occurrence: None)
  Receive Date: 20120718
  Receipt Date: 20120710
  Transmission Date: 20120928
  Serious: Yes (Other)
  Sender: FDA-Public Use
  Company Number: JP-PFIZER INC-2012134045

PATIENT
  Age: 59 Year
  Sex: Male
  Weight: 65 kg

DRUGS (7)
  1. SOLANTAL [Concomitant]
     Indication: PHARYNGITIS
     Dosage: 100 MG, 2X/DAY
     Route: 048
     Dates: start: 20120507, end: 20120510
  2. BAKUMONDOUTO [Concomitant]
     Indication: PHARYNGITIS
     Dosage: 3 G, 3X/DAY
     Route: 048
     Dates: start: 20120507, end: 20120510
  3. CLARITHROMYCIN [Concomitant]
     Indication: PHARYNGITIS
     Dosage: 200 MG, 2X/DAY
     Route: 048
     Dates: start: 20120507, end: 20120510
  4. PRANLUKAST [Concomitant]
     Indication: PHARYNGITIS
     Dosage: 225 MG, 2X/DAY
     Route: 048
     Dates: start: 20120507, end: 20120510
  5. ZITHROMAX [Suspect]
     Indication: PHARYNGITIS
     Dosage: 500 MG, 1X/DAY
     Route: 048
     Dates: start: 20120514, end: 20120516
  6. IPD [Concomitant]
     Indication: PHARYNGITIS
     Dosage: 100 MG, 3X/DAY
     Route: 048
     Dates: start: 20120514, end: 20120516
  7. MUCOBULIN [Concomitant]
     Indication: PHARYNGITIS
     Dosage: 15 MG, 3X/DAY
     Route: 048
     Dates: start: 20120514, end: 20120516

REACTIONS (1)
  - OEDEMA PERIPHERAL [None]
